FAERS Safety Report 9283713 (Version 4)
Quarter: 2014Q2

REPORT INFORMATION
  Report Type: Spontaneous
  Country: US (occurrence: US)
  Receive Date: 20130510
  Receipt Date: 20140527
  Transmission Date: 20141212
  Serious: Yes (Death)
  Sender: FDA-Public Use
  Company Number: US-GLAXOSMITHKLINE-A1023121A

PATIENT
  Age: 44 Year
  Sex: Male

DRUGS (5)
  1. VOTRIENT [Suspect]
     Indication: GLIOBLASTOMA MULTIFORME
     Dosage: 200MG UNKNOWN
     Route: 065
     Dates: start: 20130320
  2. AFINITOR [Suspect]
     Indication: GLIOBLASTOMA MULTIFORME
     Route: 065
  3. TARCEVA [Suspect]
     Indication: GLIOBLASTOMA MULTIFORME
     Route: 065
  4. UNKNOWN MEDICATION [Suspect]
     Indication: GLIOBLASTOMA MULTIFORME
     Route: 065
  5. SODIUM PHENYLBUTYRATE [Suspect]
     Indication: PRODUCT USED FOR UNKNOWN INDICATION
     Route: 065

REACTIONS (8)
  - Disease progression [Fatal]
  - Generalised tonic-clonic seizure [Unknown]
  - Hemianopia homonymous [Unknown]
  - Brain neoplasm [Unknown]
  - Aphasia [Unknown]
  - Paresis [Unknown]
  - Neoplasm progression [Unknown]
  - Hospice care [Unknown]
